FAERS Safety Report 22061518 (Version 2)
Quarter: 2024Q2

REPORT INFORMATION
  Report Type: Spontaneous
  Country: CA (occurrence: CA)
  Receive Date: 20230304
  Receipt Date: 20240424
  Transmission Date: 20240716
  Serious: Yes (Other)
  Sender: FDA-Public Use
  Company Number: CA-ABBVIE-21K-028-4198405-00

PATIENT
  Age: 68 Year
  Sex: Female

DRUGS (6)
  1. HUMIRA [Suspect]
     Active Substance: ADALIMUMAB
     Indication: Product used for unknown indication
     Route: 058
     Dates: start: 200805, end: 20200217
  2. ERELZI [Suspect]
     Active Substance: ETANERCEPT-SZZS
     Indication: Product used for unknown indication
     Route: 065
  3. SIMPONI [Suspect]
     Active Substance: GOLIMUMAB
     Indication: Product used for unknown indication
     Route: 065
     Dates: start: 202108, end: 202111
  4. OLUMIANT [Suspect]
     Active Substance: BARICITINIB
     Indication: Product used for unknown indication
     Route: 065
     Dates: start: 20200401
  5. ORENCIA [Suspect]
     Active Substance: ABATACEPT
     Indication: Product used for unknown indication
     Dosage: 125 UNITS
     Route: 058
     Dates: start: 202008, end: 202104
  6. METHOTREXATE [Concomitant]
     Active Substance: METHOTREXATE
     Indication: Product used for unknown indication
     Dates: start: 2005

REACTIONS (43)
  - Cataract [Unknown]
  - Cataract [Unknown]
  - Herpes zoster [Unknown]
  - Drug ineffective [Unknown]
  - Post herpetic neuralgia [Unknown]
  - Irritable bowel syndrome [Unknown]
  - Osteoarthritis [Unknown]
  - Therapeutic product effect decreased [Unknown]
  - Drug ineffective [Unknown]
  - Therapeutic product effect decreased [Unknown]
  - Drug ineffective [Unknown]
  - Drug ineffective [Unknown]
  - Arthritis [Unknown]
  - Joint swelling [Unknown]
  - Joint swelling [Unknown]
  - Synovitis [Unknown]
  - Drug hypersensitivity [Unknown]
  - Arthralgia [Unknown]
  - Retinal operation [Not Recovered/Not Resolved]
  - Sinusitis [Unknown]
  - Pain [Unknown]
  - Swelling [Unknown]
  - Poor quality sleep [Unknown]
  - Musculoskeletal stiffness [Unknown]
  - Rhinorrhoea [Unknown]
  - Drug hypersensitivity [Recovering/Resolving]
  - Therapeutic product effect decreased [Unknown]
  - Drug ineffective [Unknown]
  - Musculoskeletal stiffness [Unknown]
  - Rhinorrhoea [Unknown]
  - Joint swelling [Unknown]
  - Arthralgia [Unknown]
  - Joint swelling [Unknown]
  - Post herpetic neuralgia [Unknown]
  - Arthralgia [Unknown]
  - Arthralgia [Unknown]
  - Arthralgia [Unknown]
  - Joint swelling [Unknown]
  - Poor quality sleep [Unknown]
  - Swelling [Unknown]
  - Sinusitis [Unknown]
  - Irritable bowel syndrome [Unknown]
  - Arthralgia [Unknown]

NARRATIVE: CASE EVENT DATE: 20080501
